FAERS Safety Report 8262156-2 (Version None)
Quarter: 2012Q2

REPORT INFORMATION
  Report Type: 
  Country: None (occurrence: None)
  Receive Date: 20120405
  Receipt Date: 20120329
  Transmission Date: 20120825
  Serious: Yes (Hospitalization)
  Sender: FDA-Public Use
  Company Number: JP-PFIZER INC-2012034801

PATIENT
  Age: 83 Year
  Sex: Female

DRUGS (1)
  1. ZITHROMAX [Suspect]

REACTIONS (1)
  - INTERSTITIAL LUNG DISEASE [None]
